FAERS Safety Report 18588259 (Version 1)
Quarter: 2020Q4

REPORT INFORMATION
  Report Type: Spontaneous
  Country: US (occurrence: US)
  Receive Date: 20201207
  Receipt Date: 20201207
  Transmission Date: 20210114
  Serious: No
  Sender: FDA-Public Use
  Company Number: US-009507513-2011USA016748

PATIENT
  Age: 2 Year
  Sex: Female

DRUGS (4)
  1. INTRON A [Suspect]
     Active Substance: INTERFERON ALFA-2B
     Dosage: 0.38 UNK, QD, ON MONDAY, WEDNESDAY AND FRIDAY FOR 21 DAYS
     Route: 058
  2. TYLENOL [Concomitant]
     Active Substance: ACETAMINOPHEN
  3. ZOFRAN [Concomitant]
     Active Substance: ONDANSETRON HYDROCHLORIDE
  4. INTRON A [Suspect]
     Active Substance: INTERFERON ALFA-2B
     Indication: PHARYNGEAL NEOPLASM
     Dosage: 0.19 MILLILITER, QD, ON MONDAY, WEDNESDAY AND FRIDAY FOR 7 DAYS
     Route: 058
     Dates: start: 202011

REACTIONS (1)
  - Pyrexia [Unknown]

NARRATIVE: CASE EVENT DATE: 202011
